FAERS Safety Report 13108310 (Version 1)
Quarter: 2017Q1

REPORT INFORMATION
  Report Type: Spontaneous
  Country: US (occurrence: US)
  Receive Date: 20170111
  Receipt Date: 20170111
  Transmission Date: 20170428
  Serious: Yes (Hospitalization)
  Sender: FDA-Public Use
  Company Number: None

PATIENT
  Age: 74 Year
  Sex: Male
  Weight: 58.8 kg

DRUGS (1)
  1. VINORELBINE [Suspect]
     Active Substance: VINORELBINE\VINORELBINE TARTRATE
     Indication: MESOTHELIOMA
     Dates: start: 20161020, end: 20161223

REACTIONS (3)
  - Anaemia [None]
  - Leukopenia [None]
  - Febrile neutropenia [None]

NARRATIVE: CASE EVENT DATE: 20161222
